FAERS Safety Report 20851365 (Version 2)
Quarter: 2022Q3

REPORT INFORMATION
  Report Type: Report from Study
  Country: DE (occurrence: DE)
  Receive Date: 20220519
  Receipt Date: 20220720
  Transmission Date: 20221027
  Serious: Yes (Hospitalization, Other)
  Sender: FDA-Public Use
  Company Number: DE-BIOGEN-2022BI01124655

PATIENT
  Age: 59 Year
  Sex: Male

DRUGS (10)
  1. TYSABRI [Suspect]
     Active Substance: NATALIZUMAB
     Indication: Relapsing-remitting multiple sclerosis
     Route: 050
     Dates: start: 20101227
  2. DALFAMPRIDINE [Suspect]
     Active Substance: DALFAMPRIDINE
     Indication: Multiple sclerosis
     Route: 050
  3. Enapranil [Concomitant]
     Indication: Hypertension
     Route: 050
  4. CLOPIDOGREL [Concomitant]
     Active Substance: CLOPIDOGREL BISULFATE
     Indication: Acute myocardial infarction
     Route: 050
  5. ELIQUIS [Concomitant]
     Active Substance: APIXABAN
     Indication: Acute myocardial infarction
     Route: 050
  6. METOPROLOL [Concomitant]
     Active Substance: METOPROLOL
     Indication: Hypertension
     Dosage: 457,5MG
     Route: 050
  7. SIMVASTATIN [Concomitant]
     Active Substance: SIMVASTATIN
     Indication: Blood cholesterol increased
     Route: 050
  8. GABAPENTIN [Concomitant]
     Active Substance: GABAPENTIN
     Indication: Multiple sclerosis
     Route: 050
  9. TRAMADOL [Concomitant]
     Active Substance: TRAMADOL
     Indication: Multiple sclerosis
     Route: 050
  10. NABIXIMOLS [Concomitant]
     Active Substance: NABIXIMOLS
     Indication: Multiple sclerosis
     Dosage: 6-8
     Route: 050

REACTIONS (1)
  - Myocardial infarction [Not Recovered/Not Resolved]

NARRATIVE: CASE EVENT DATE: 20220508
